FAERS Safety Report 6615407-1 (Version None)
Quarter: 2010Q1

REPORT INFORMATION
  Report Type: 
  Country: None (occurrence: None)
  Receive Date: 20100305
  Receipt Date: 20091105
  Transmission Date: 20100710
  Serious: No
  Sender: FDA-Public Use
  Company Number: A0816276A

PATIENT
  Sex: Male
  Weight: 102.3 kg

DRUGS (11)
  1. REQUIP [Suspect]
     Indication: PARKINSON'S DISEASE
     Dosage: 8MG THREE TIMES PER DAY
     Route: 048
     Dates: start: 19991001
  2. ROPINIROLE HYDROCHLORIDE [Suspect]
     Indication: PARKINSON'S DISEASE
     Dosage: 4MG THREE TIMES PER DAY
     Route: 048
  3. COUMADIN [Concomitant]
  4. METOPROLOL TARTRATE [Concomitant]
  5. DIGOXIN [Concomitant]
  6. LEXAPRO [Concomitant]
  7. PRAVACHOL [Concomitant]
  8. STALEVO 100 [Concomitant]
  9. WELLBUTRIN SR [Concomitant]
  10. VIOXX [Concomitant]
  11. BEXTRA [Concomitant]

REACTIONS (1)
  - PATHOLOGICAL GAMBLING [None]
